FAERS Safety Report 5139435-0 (Version None)
Quarter: 2006Q4

REPORT INFORMATION
  Report Type: 
  Country: None (occurrence: None)
  Receive Date: 20061030
  Receipt Date: 20060417
  Transmission Date: 20070319
  Serious: Yes (Other)
  Sender: FDA-Public Use
  Company Number: US-GLAXOSMITHKLINE-A0602544A

PATIENT
  Sex: Female

DRUGS (4)
  1. SEREVENT [Suspect]
     Indication: ASTHMA
     Dosage: 50MCG UNKNOWN
     Route: 055
  2. ALBUTEROL [Concomitant]
     Indication: ASTHMA
  3. UNSPECIFIED MEDICATION [Concomitant]
  4. SEREVENT [Concomitant]
     Dosage: 1PUFF PER DAY
     Route: 055
     Dates: start: 19940101

REACTIONS (3)
  - ADVERSE EVENT [None]
  - ASTHMA [None]
  - PALPITATIONS [None]
